FAERS Safety Report 17229846 (Version 1)
Quarter: 2020Q1

REPORT INFORMATION
  Report Type: Report from Study
  Country: PK (occurrence: PK)
  Receive Date: 20200103
  Receipt Date: 20200103
  Transmission Date: 20200409
  Serious: Yes (Death)
  Sender: FDA-Public Use
  Company Number: NVSC2020PK000756

PATIENT
  Age: 41 Year
  Sex: Male
  Weight: 75 kg

DRUGS (1)
  1. GLIVEC [Suspect]
     Active Substance: IMATINIB MESYLATE
     Indication: GASTROINTESTINAL STROMAL TUMOUR
     Dosage: 3 DF, BID (600 MG) 3 MORNING AND 3 EVENING)
     Route: 048
     Dates: start: 20160411

REACTIONS (1)
  - Death [Fatal]

NARRATIVE: CASE EVENT DATE: 20190920
